FAERS Safety Report 6354853-0 (Version None)
Quarter: 2009Q3

REPORT INFORMATION
  Report Type: 
  Country: None (occurrence: None)
  Receive Date: 20090914
  Receipt Date: 20090903
  Transmission Date: 20100115
  Serious: Yes (Other)
  Sender: FDA-Public Use
  Company Number: FI-JNJFOC-20090901937

PATIENT
  Age: 14 Year
  Sex: Male

DRUGS (6)
  1. REMICADE [Suspect]
     Route: 042
  2. REMICADE [Suspect]
     Indication: JUVENILE ARTHRITIS
     Dosage: APPROXIMATELY 7 - 8 YEARS AGO
     Route: 042
  3. PREDNISOLONE [Concomitant]
  4. PREDNISOLONE [Concomitant]
  5. METHOTREXATE [Concomitant]
  6. METHOTREXATE [Concomitant]

REACTIONS (6)
  - ARTHROPATHY [None]
  - DRUG INEFFECTIVE [None]
  - INFECTION [None]
  - PERICARDITIS [None]
  - PLEURISY [None]
  - SERUM FERRITIN INCREASED [None]
